FAERS Safety Report 18929657 (Version 6)
Quarter: 2021Q4

REPORT INFORMATION
  Report Type: Report from Study
  Country: US (occurrence: US)
  Receive Date: 20210223
  Receipt Date: 20211207
  Transmission Date: 20220303
  Serious: Yes (Other)
  Sender: FDA-Public Use
  Company Number: NVSC2021US036556

PATIENT
  Age: 57 Year
  Sex: Female

DRUGS (2)
  1. KESIMPTA [Suspect]
     Active Substance: OFATUMUMAB
     Indication: Multiple sclerosis
     Dosage: UNK, QMO
     Route: 058
     Dates: start: 20210208
  2. KESIMPTA [Suspect]
     Active Substance: OFATUMUMAB
     Dosage: UNK
     Route: 065

REACTIONS (11)
  - Multiple sclerosis relapse [Unknown]
  - Injection site discomfort [Recovered/Resolved]
  - Injection site pain [Unknown]
  - Generalised anxiety disorder [Unknown]
  - Depression [Unknown]
  - Blood cholesterol increased [Unknown]
  - Cognitive disorder [Not Recovered/Not Resolved]
  - Temperature intolerance [Unknown]
  - Balance disorder [Not Recovered/Not Resolved]
  - Mood swings [Unknown]
  - Fatigue [Not Recovered/Not Resolved]

NARRATIVE: CASE EVENT DATE: 20210208
